FAERS Safety Report 23078767 (Version 1)
Quarter: 2023Q4

REPORT INFORMATION
  Report Type: Spontaneous
  Country: CA (occurrence: CA)
  Receive Date: 20231018
  Receipt Date: 20231018
  Transmission Date: 20240110
  Serious: Yes (Hospitalization)
  Sender: FDA-Public Use
  Company Number: CA-SANDOZ-SDZ2023CA041890

PATIENT
  Age: 19 Year
  Sex: Female
  Weight: 50 kg

DRUGS (2)
  1. DEFERASIROX [Suspect]
     Active Substance: DEFERASIROX
     Indication: Iron overload
     Dosage: 1440 MG, QD
     Route: 048
  2. VITAMIN D [Concomitant]
     Active Substance: VITAMIN D NOS
     Indication: Product used for unknown indication
     Dosage: UNK
     Route: 065

REACTIONS (2)
  - Abdominal pain [Recovered/Resolved]
  - Product substitution issue [Recovered/Resolved]
